FAERS Safety Report 8577533-X (Version None)
Quarter: 2012Q3

REPORT INFORMATION
  Report Type: 
  Country: None (occurrence: None)
  Receive Date: 20120725
  Receipt Date: 20120713
  Transmission Date: 20120928
  Serious: Yes (Hospitalization)
  Sender: FDA-Public Use
  Company Number: ACO_31100_2012

PATIENT
  Age: 43 Year
  Sex: Male

DRUGS (3)
  1. AMPYRA [Suspect]
     Indication: MULTIPLE SCLEROSIS
     Dosage: 10 MG, BID, ORAL
     Route: 048
     Dates: start: 20120417
  2. BETAFERON [Concomitant]
  3. CANDESARTAN CILEXETIL [Concomitant]

REACTIONS (2)
  - UPPER LIMB FRACTURE [None]
  - FALL [None]
